FAERS Safety Report 4730633-4 (Version None)
Quarter: 2005Q3

REPORT INFORMATION
  Report Type: 
  Country: None (occurrence: None)
  Receive Date: 20050801
  Receipt Date: 20050725
  Transmission Date: 20060218
  Serious: Yes (Death)
  Sender: FDA-Public Use
  Company Number: FR-SANOFI-SYNTHELABO-A02200501979

PATIENT
  Age: 55 Year
  Sex: Male
  Weight: 80 kg

DRUGS (6)
  1. PLAVIX [Suspect]
     Indication: PROPHYLAXIS
     Route: 048
  2. CRESTOR [Suspect]
     Indication: HYPERCHOLESTEROLAEMIA
     Route: 048
     Dates: start: 20050602
  3. EZETROL [Suspect]
     Indication: HYPERCHOLESTEROLAEMIA
     Route: 048
     Dates: start: 20050607
  4. TENORMIN [Suspect]
     Indication: HYPERTENSION
     Dosage: 150 MG
     Route: 048
  5. ADALAT [Suspect]
     Indication: HYPERTENSION
     Dosage: 30 MG
     Route: 048
  6. COVERSYL [Suspect]
     Indication: HYPERTENSION
     Dosage: 2 MG
     Route: 048

REACTIONS (5)
  - CARDIAC ARREST [None]
  - CARDIAC FIBRILLATION [None]
  - MYALGIA [None]
  - SEASONAL ALLERGY [None]
  - TRACHEITIS [None]
